FAERS Safety Report 24825104 (Version 1)
Quarter: 2025Q1

REPORT INFORMATION
  Report Type: Spontaneous
  Country: GB (occurrence: None)
  Receive Date: 20250108
  Receipt Date: 20250108
  Transmission Date: 20250409
  Serious: Yes (Disabling)
  Sender: FDA-CTU
  Company Number: None

PATIENT
  Age: 45 Year
  Sex: Female
  Weight: 68 kg

DRUGS (4)
  1. SERTRALINE [Suspect]
     Active Substance: SERTRALINE HYDROCHLORIDE
     Indication: Premenstrual syndrome
     Dosage: FREQUENCY : DAILY;?
     Route: 048
     Dates: start: 20130406, end: 20141006
  2. ATORVASTATIN [Concomitant]
     Active Substance: ATORVASTATIN
  3. MELATONIN [Concomitant]
     Active Substance: MELATONIN
  4. Vitamin D 400IU [Concomitant]

REACTIONS (12)
  - Sexual dysfunction [None]
  - Blunted affect [None]
  - Anhedonia [None]
  - Obesity [None]
  - Disturbance in attention [None]
  - Fatigue [None]
  - Hypersomnia [None]
  - Genital hypoaesthesia [None]
  - Anorgasmia [None]
  - Loss of libido [None]
  - Apathy [None]
  - Areflexia [None]

NARRATIVE: CASE EVENT DATE: 20130408
